FAERS Safety Report 7631346 (Version 22)
Quarter: 2013Q4

REPORT INFORMATION
  Report Type: Spontaneous
  Country: CA (occurrence: CA)
  Receive Date: 20101015
  Receipt Date: 20131225
  Transmission Date: 20140711
  Serious: Yes (Hospitalization, Other)
  Sender: FDA-Public Use
  Company Number: CA-ROCHE-GNE307756

PATIENT
  Age: 53 Year
  Sex: Male
  Weight: 96.1 kg

DRUGS (15)
  1. XOLAIR [Suspect]
     Indication: ASTHMA
     Dosage: 375 MG, Q2W
     Route: 058
     Dates: start: 20070721
  2. XOLAIR [Suspect]
     Dosage: 375 MG, Q2W
     Route: 058
     Dates: start: 20091210
  3. XOLAIR [Suspect]
     Dosage: 375 MG, Q2W
     Route: 058
     Dates: start: 20100429
  4. XOLAIR [Suspect]
     Dosage: 375 MG, Q2W
     Route: 058
     Dates: start: 20070712
  5. XOLAIR [Suspect]
     Route: 065
     Dates: start: 20130228
  6. XOLAIR [Suspect]
     Route: 058
     Dates: start: 20090402
  7. XOLAIR [Suspect]
     Route: 065
     Dates: start: 20130425
  8. XOLAIR [Suspect]
     Route: 058
     Dates: start: 20130508
  9. XOLAIR [Suspect]
     Route: 065
     Dates: start: 20130704
  10. XOLAIR [Suspect]
     Route: 065
     Dates: start: 20130815
  11. XOLAIR [Suspect]
     Route: 065
     Dates: start: 20130912
  12. ALERTEC [Concomitant]
     Indication: PRODUCT USED FOR UNKNOWN INDICATION
  13. CEFZIL [Concomitant]
  14. PREDNISONE [Concomitant]
  15. EPIPEN [Concomitant]

REACTIONS (28)
  - Loss of consciousness [Unknown]
  - Pneumonia [Unknown]
  - Infectious pleural effusion [Unknown]
  - Asthma [Unknown]
  - Respiratory rate increased [Unknown]
  - Dyspnoea [Unknown]
  - Atrial fibrillation [Unknown]
  - Aortic valve disease [Unknown]
  - Aortic stenosis [Unknown]
  - Chest pain [Unknown]
  - Dysphonia [Unknown]
  - Tachycardia [Unknown]
  - Dyspnoea exertional [Unknown]
  - Increased upper airway secretion [Unknown]
  - Cough [Unknown]
  - Sputum discoloured [Unknown]
  - Fatigue [Unknown]
  - Influenza [Unknown]
  - Nasal mucosal discolouration [Unknown]
  - Weight decreased [Unknown]
  - Stress [Unknown]
  - Fall [Unknown]
  - Heart rate increased [Unknown]
  - Blood pressure increased [Not Recovered/Not Resolved]
  - Confusional state [Unknown]
  - Cardiac valve disease [Unknown]
  - Panic attack [Unknown]
  - Weight increased [Unknown]
